FAERS Safety Report 7957343-4 (Version None)
Quarter: 2011Q4

REPORT INFORMATION
  Report Type: 
  Country: None (occurrence: None)
  Receive Date: 20111205
  Receipt Date: 20111121
  Transmission Date: 20120403
  Serious: Yes (Hospitalization, Other)
  Sender: FDA-Public Use
  Company Number: PHHO2011AR019495

PATIENT
  Sex: Female
  Weight: 82 kg

DRUGS (11)
  1. ENALAPRIL MALEATE [Suspect]
     Indication: CARDIAC FAILURE CHRONIC
     Dosage: CODE NOT BROKEN
     Route: 048
     Dates: start: 20111107, end: 20111109
  2. NAPROXEN [Concomitant]
  3. CARVEDILOL [Concomitant]
     Indication: CARDIAC FAILURE
     Dosage: 18.75 MG, QD
     Route: 048
     Dates: start: 20070101
  4. EPLERENONE [Concomitant]
     Indication: CARDIAC FAILURE
     Dosage: 25 MG, QD
     Route: 048
     Dates: start: 20110726
  5. PREDNISONE TAB [Suspect]
     Dosage: 5 MG, DAILY
  6. CLOPIDOGREL [Concomitant]
     Indication: CORONARY ARTERY DISEASE
     Dosage: 75 MG, QD
     Dates: start: 20110726
  7. LEFLUNOMIDE [Concomitant]
  8. BLINDED NO TREATMENT RECEIVED [Suspect]
     Indication: CARDIAC FAILURE CHRONIC
     Dosage: CODE NOT BROKEN
     Route: 048
     Dates: start: 20111107, end: 20111109
  9. VALSARTAN [Suspect]
     Indication: CARDIAC FAILURE CHRONIC
     Dosage: CODE NOT BROKEN
     Route: 048
     Dates: start: 20111107, end: 20111109
  10. ISOSORBIDE DINITRATE [Concomitant]
     Indication: CORONARY ARTERY DISEASE
     Dosage: 60 MG, QD
     Route: 048
     Dates: start: 20110726
  11. ASPIRIN [Concomitant]
     Indication: CORONARY ARTERY DISEASE
     Dosage: 100 MG, QD
     Route: 048
     Dates: start: 20020101

REACTIONS (2)
  - CARDIAC FAILURE [None]
  - DISEASE PROGRESSION [None]
